FAERS Safety Report 6410689-3 (Version None)
Quarter: 2009Q4

REPORT INFORMATION
  Report Type: 
  Country: None (occurrence: None)
  Receive Date: 20091015
  Receipt Date: 20091012
  Transmission Date: 20100525
  Serious: Yes (Other)
  Sender: FDA-Public Use
  Company Number: CHPA2009US20195

PATIENT
  Age: 55 Year
  Sex: Female
  Weight: 61.2 kg

DRUGS (2)
  1. KERI SERUM (NCH) (NO INGREDIENTS/SUBSTANCES) GEL [Suspect]
     Indication: DRY SKIN
     Dosage: TOPICAL
     Route: 061
     Dates: start: 20090901, end: 20090922
  2. KERI SERUM (NCH) (NO INGREDIENTS/SUBSTANCES) GEL [Suspect]
     Indication: SUNBURN
     Dosage: TOPICAL
     Route: 061
     Dates: start: 20090901, end: 20090922

REACTIONS (7)
  - DERMATITIS ALLERGIC [None]
  - ERYTHEMA [None]
  - FEELING HOT [None]
  - OEDEMA PERIPHERAL [None]
  - PRURITUS [None]
  - RASH GENERALISED [None]
  - THERMAL BURN [None]
